FAERS Safety Report 4500947-1 (Version None)
Quarter: 2004Q4

REPORT INFORMATION
  Report Type: 
  Country: None (occurrence: None)
  Receive Date: 20041115
  Receipt Date: 20031121
  Transmission Date: 20050328
  Serious: Yes (Hospitalization, Disabling)
  Sender: FDA-Public Use
  Company Number: US-MERCK-0311USA02529

PATIENT
  Age: 61 Year
  Sex: Female
  Weight: 73 kg

DRUGS (12)
  1. VIOXX [Suspect]
     Indication: ARTHRALGIA
     Route: 048
     Dates: start: 19990701, end: 20030801
  2. BEXTRA [Concomitant]
     Indication: ARTHRITIS
     Route: 065
  3. BEXTRA [Concomitant]
     Indication: FIBROMYALGIA
     Route: 065
  4. ULTRACET [Concomitant]
     Indication: ARTHRALGIA
     Route: 048
     Dates: start: 19990101
  5. DYAZIDE [Concomitant]
     Route: 065
     Dates: start: 19980101, end: 20021101
  6. ZOLOFT [Concomitant]
     Indication: DEPRESSION
     Route: 065
     Dates: start: 19990101, end: 20030601
  7. PREMARIN [Concomitant]
     Route: 065
     Dates: start: 19890901, end: 20030101
  8. SKELAXIN [Concomitant]
     Indication: MUSCLE SPASMS
     Route: 048
     Dates: start: 19990101, end: 20031101
  9. PRILOSEC [Concomitant]
     Route: 048
  10. DITROPAN XL [Concomitant]
     Route: 065
  11. VIOXX [Suspect]
     Route: 048
     Dates: start: 19990701, end: 20030801
  12. PREVACID [Concomitant]
     Route: 065

REACTIONS (31)
  - ABDOMINAL PAIN [None]
  - ABDOMINAL PAIN UPPER [None]
  - ANXIETY [None]
  - BLOOD CHOLESTEROL INCREASED [None]
  - BURSITIS [None]
  - CORONARY ARTERY DISEASE [None]
  - DEPRESSION [None]
  - DIVERTICULUM INTESTINAL [None]
  - DRUG HYPERSENSITIVITY [None]
  - FATIGUE [None]
  - HAEMANGIOMA OF LIVER [None]
  - HEADACHE [None]
  - HYPERLIPIDAEMIA [None]
  - HYPERTENSION [None]
  - INSOMNIA [None]
  - ISCHAEMIC CARDIOMYOPATHY [None]
  - MYOCARDIAL INFARCTION [None]
  - NASOPHARYNGITIS [None]
  - NIGHT SWEATS [None]
  - OEDEMA PERIPHERAL [None]
  - OTITIS EXTERNA [None]
  - PALPITATIONS [None]
  - PANIC ATTACK [None]
  - PELVIC PAIN [None]
  - PHARYNGITIS [None]
  - PRURITUS [None]
  - RASH [None]
  - URINARY RETENTION [None]
  - URINARY TRACT INFECTION [None]
  - VAGINITIS ATROPHIC [None]
  - VERTIGO POSITIONAL [None]
